FAERS Safety Report 4331270-6 (Version None)
Quarter: 2004Q1

REPORT INFORMATION
  Report Type: 
  Country: None (occurrence: None)
  Receive Date: 20040331
  Receipt Date: 20040317
  Transmission Date: 20041129
  Serious: Yes (Life-Threatening)
  Sender: FDA-Public Use
  Company Number: RENA-10950

PATIENT
  Age: 20 Month
  Sex: Female
  Weight: 8.95 kg

DRUGS (8)
  1. RENAGEL [Suspect]
     Indication: HYPERPHOSPHATAEMIA
     Dosage: 1.6 MG QD PO
     Route: 048
     Dates: start: 20031010, end: 20040207
  2. INDERAL [Concomitant]
  3. TRANDATE [Concomitant]
  4. APRICAL [Concomitant]
  5. SODIUM CITRATE [Concomitant]
  6. TRIMETHOPRIM [Concomitant]
  7. KAYEXALATE [Concomitant]
  8. CALCIUM ACETATE [Concomitant]

REACTIONS (5)
  - BLOOD PHOSPHORUS INCREASED [None]
  - GASTROENTERITIS [None]
  - HYPOKALAEMIA [None]
  - METABOLIC ACIDOSIS [None]
  - PYREXIA [None]
